FAERS Safety Report 7653986-6 (Version None)
Quarter: 2011Q3

REPORT INFORMATION
  Report Type: 
  Country: None (occurrence: None)
  Receive Date: 20110803
  Receipt Date: 20110720
  Transmission Date: 20111222
  Serious: Yes (Hospitalization, Other)
  Sender: FDA-Public Use
  Company Number: PHHY2011AR36847

PATIENT
  Sex: Female

DRUGS (2)
  1. DIOVAN [Suspect]
     Indication: BLOOD PRESSURE ABNORMAL
     Dosage: 1 DF, DAILY (80 MG)
     Route: 048
     Dates: start: 20070101, end: 20101025
  2. DIOVAN [Suspect]
     Dosage: 1 DF, DAILY (80 MG)
     Route: 048
     Dates: start: 20110301

REACTIONS (4)
  - ARTERIAL OCCLUSIVE DISEASE [None]
  - MUSCULOSKELETAL PAIN [None]
  - BACK PAIN [None]
  - MYOCARDIAL INFARCTION [None]
